FAERS Safety Report 9222360 (Version 1)
Quarter: 2013Q1

REPORT INFORMATION
  Report Type: Spontaneous
  Country: US (occurrence: None)
  Receive Date: 20120910
  Receipt Date: 20120910
  Transmission Date: 20140127
  Serious: Yes (Hospitalization)
  Sender: FDA-Public Use
  Company Number: 2011-01350

PATIENT
  Age: 75 Year
  Sex: Female
  Weight: 64.41 kg

DRUGS (2)
  1. AMLODIPINE BESYLATE TABLETS [Suspect]
     Indication: HYPERTENSION
     Route: 048
     Dates: start: 20111111, end: 20111114
  2. ATENOLOL (TABLETS) [Concomitant]

REACTIONS (1)
  - Atrial fibrillation [None]
